FAERS Safety Report 17787417 (Version 1)
Quarter: 2020Q2

REPORT INFORMATION
  Report Type: Spontaneous
  Country: CA (occurrence: CA)
  Receive Date: 20200514
  Receipt Date: 20200514
  Transmission Date: 20200714
  Serious: Yes (Hospitalization, Disabling)
  Sender: FDA-Public Use
  Company Number: CA-009507513-2005CAN003912

PATIENT
  Age: 83 Year
  Sex: Female
  Weight: 79.38 kg

DRUGS (1)
  1. FOSAMAX [Suspect]
     Active Substance: ALENDRONATE SODIUM
     Indication: OSTEOPOROSIS
     Dosage: 70 MILLIGRAM 1 EVERY 1 WEEKS
     Route: 048

REACTIONS (4)
  - Fall [Recovering/Resolving]
  - Arthralgia [Recovering/Resolving]
  - Atypical fracture [Recovering/Resolving]
  - Femur fracture [Recovering/Resolving]
